FAERS Safety Report 11589600 (Version 5)
Quarter: 2016Q4

REPORT INFORMATION
  Report Type: Spontaneous
  Country: US (occurrence: US)
  Receive Date: 20151002
  Receipt Date: 20161206
  Transmission Date: 20170206
  Serious: Yes (Other)
  Sender: FDA-Public Use
  Company Number: US-JNJFOC-20150914167

PATIENT
  Age: 14 Year
  Sex: Male

DRUGS (4)
  1. RISPERDAL [Suspect]
     Active Substance: RISPERIDONE
     Indication: AFFECTIVE DISORDER
     Route: 048
     Dates: start: 19980318, end: 19980517
  2. RISPERDAL [Suspect]
     Active Substance: RISPERIDONE
     Indication: AFFECTIVE DISORDER
     Route: 048
     Dates: start: 20000106, end: 20040408
  3. RISPERDAL [Suspect]
     Active Substance: RISPERIDONE
     Indication: PANIC DISORDER
     Route: 048
     Dates: start: 19980318, end: 19980517
  4. RISPERDAL [Suspect]
     Active Substance: RISPERIDONE
     Indication: PANIC DISORDER
     Route: 048
     Dates: start: 20000106, end: 20040408

REACTIONS (8)
  - Gynaecomastia [Recovering/Resolving]
  - Diarrhoea [Unknown]
  - Hyperprolactinaemia [Unknown]
  - Product use issue [Unknown]
  - Off label use [Unknown]
  - Liver disorder [Unknown]
  - Abnormal weight gain [Recovering/Resolving]
  - Abdominal pain [Unknown]

NARRATIVE: CASE EVENT DATE: 1998
